FAERS Safety Report 10021118 (Version 2)
Quarter: 2014Q2

REPORT INFORMATION
  Report Type: Spontaneous
  Country: US (occurrence: US)
  Receive Date: 20140319
  Receipt Date: 20140509
  Transmission Date: 20141212
  Serious: No
  Sender: FDA-Public Use
  Company Number: US-PFIZER INC-2014076369

PATIENT
  Sex: Female

DRUGS (1)
  1. ADVIL [Suspect]
     Dosage: UNK
     Route: 048

REACTIONS (3)
  - Poor quality drug administered [Unknown]
  - Drug ineffective [Unknown]
  - Product packaging quantity issue [Unknown]
